FAERS Safety Report 4946334-3 (Version None)
Quarter: 2006Q1

REPORT INFORMATION
  Report Type: 
  Country: None (occurrence: None)
  Receive Date: 20060317
  Receipt Date: 20051110
  Transmission Date: 20060701
  Serious: Yes (Hospitalization)
  Sender: FDA-Public Use
  Company Number: HQWYE556715NOV05

PATIENT
  Sex: Female

DRUGS (13)
  1. ENBREL [Suspect]
     Indication: RHEUMATOID ARTHRITIS
     Route: 058
     Dates: start: 20050621
  2. CALCIUM CARBONATE [Concomitant]
     Dosage: DOSE AND FREQUENCY NOT SPECIFIED
  3. ROCALTROL [Concomitant]
     Dosage: DOSE AND FREQUENCY NOT SPECIFIED
  4. KAYEXALATE [Concomitant]
     Dosage: DOSE AND FREQUENCY NOT SPECIFIED
  5. MUCOSTA [Concomitant]
     Dosage: DOSE AND FREQUENCY NOT SPECIFIED
  6. SELBEX [Concomitant]
     Dosage: DOSE AND FREQUENCY NOT SPECIFIED
  7. ASPARA-CA [Concomitant]
     Dosage: DOSE AND FREQUENCY NOT SPECIFIED
  8. LANSOPRAZOLE [Concomitant]
     Dosage: DOSE AND FREQUENCY NOT SPECIFIED
  9. PRIMPERAN TAB [Concomitant]
     Dosage: DOSE AND FREQUENCY NOT SPECIFIED
  10. RISUMIC [Concomitant]
  11. ALLEGRA [Concomitant]
  12. NERISONA [Concomitant]
  13. LOXONIN [Concomitant]

REACTIONS (1)
  - ECZEMA [None]
